FAERS Safety Report 10101282 (Version 1)
Quarter: 2014Q2

REPORT INFORMATION
  Report Type: Spontaneous
  Country: US (occurrence: US)
  Receive Date: 20140424
  Receipt Date: 20140424
  Transmission Date: 20141212
  Serious: No
  Sender: FDA-Public Use
  Company Number: US-PFIZER INC-2014109538

PATIENT
  Age: 69 Year
  Sex: Female

DRUGS (11)
  1. XALKORI [Suspect]
     Indication: LUNG NEOPLASM MALIGNANT
     Dosage: 250 MG, 2X/DAY
     Route: 048
  2. PEPCID AC [Suspect]
     Indication: GASTROOESOPHAGEAL REFLUX DISEASE
     Dosage: 10 MG, UNK
  3. SINGULAIR [Concomitant]
     Dosage: 10 MG, UNK
  4. SINGULAIR [Concomitant]
     Dosage: 4 MG, UNK
  5. PANCREASE MT [Concomitant]
     Dosage: 10 UNK, UNK
  6. GABAPENTIN [Concomitant]
     Dosage: 300 MG, UNK
  7. FENOFIBRATE [Concomitant]
     Dosage: 130 MG, UNK
  8. CALCIUM W/MAGNESIUM [Concomitant]
  9. VITAMIN D3 [Concomitant]
     Dosage: 10000 IU, UNK
  10. ROBINUL FORTE [Concomitant]
     Dosage: 2 MG, UNK
  11. ANUSOL-HC [Concomitant]
     Dosage: 25 MG, UNK

REACTIONS (3)
  - Oropharyngeal pain [Unknown]
  - Throat tightness [Unknown]
  - Odynophagia [Unknown]
